FAERS Safety Report 5354420-1 (Version None)
Quarter: 2007Q2

REPORT INFORMATION
  Report Type: 
  Country: None (occurrence: None)
  Receive Date: 20070612
  Receipt Date: 20070530
  Transmission Date: 20071010
  Serious: Yes (Hospitalization, Other)
  Sender: FDA-Public Use
  Company Number: US-SHR-US-2007-014162

PATIENT
  Age: 56 Year
  Sex: Female
  Weight: 77.098 kg

DRUGS (2)
  1. BETASERON [Suspect]
     Indication: SECONDARY PROGRESSIVE MULTIPLE SCLEROSIS
     Dosage: 2 MIU, EVERY 2D
     Route: 058
     Dates: start: 20070226, end: 20070302
  2. INSULIN [Concomitant]
     Dosage: UNK, CONT
     Route: 041
     Dates: start: 20070301

REACTIONS (33)
  - ABASIA [None]
  - BACK PAIN [None]
  - BALANCE DISORDER [None]
  - BLINDNESS [None]
  - BLOOD PRESSURE IMMEASURABLE [None]
  - COLON INJURY [None]
  - DIARRHOEA [None]
  - DYSSTASIA [None]
  - FALL [None]
  - FATIGUE [None]
  - HAND FRACTURE [None]
  - HEADACHE [None]
  - HEART INJURY [None]
  - HEAT EXHAUSTION [None]
  - HEMIPARESIS [None]
  - HEMIPLEGIA [None]
  - HEPATOCELLULAR DAMAGE [None]
  - HYPOAESTHESIA [None]
  - INFLUENZA LIKE ILLNESS [None]
  - INSOMNIA [None]
  - MOBILITY DECREASED [None]
  - MULTIPLE SCLEROSIS [None]
  - PAIN [None]
  - PAIN IN EXTREMITY [None]
  - PNEUMONIA [None]
  - RENAL INJURY [None]
  - SKELETAL INJURY [None]
  - SWELLING [None]
  - UPPER LIMB FRACTURE [None]
  - VISION BLURRED [None]
  - VISUAL FIELD DEFECT [None]
  - VOMITING [None]
  - WHITE BLOOD CELL COUNT INCREASED [None]
